FAERS Safety Report 5531374-6 (Version None)
Quarter: 2007Q4

REPORT INFORMATION
  Report Type: 
  Country: None (occurrence: None)
  Receive Date: 20071128
  Receipt Date: 20071105
  Transmission Date: 20080405
  Serious: Yes (Other)
  Sender: FDA-Public Use
  Company Number: 2007US002844

PATIENT
  Age: 8 Year
  Sex: Female

DRUGS (9)
  1. AMBISOME [Suspect]
     Indication: LIVER ABSCESS
     Dosage: 50 MG, UID/QD, IV DRIP ; 100 MG, UID/QD, IV DRIP ; 50 MG, UID/QD, IV DRIP
     Route: 041
     Dates: start: 20070813, end: 20070904
  2. AMBISOME [Suspect]
     Indication: LIVER ABSCESS
     Dosage: 50 MG, UID/QD, IV DRIP ; 100 MG, UID/QD, IV DRIP ; 50 MG, UID/QD, IV DRIP
     Route: 041
     Dates: start: 20070905, end: 20070913
  3. AMBISOME [Suspect]
     Indication: LIVER ABSCESS
     Dosage: 50 MG, UID/QD, IV DRIP ; 100 MG, UID/QD, IV DRIP ; 50 MG, UID/QD, IV DRIP
     Route: 041
     Dates: start: 20070914
  4. SOLU-MEDROL [Suspect]
     Dosage: 104 MG, IV DRIP
     Route: 041
     Dates: start: 20070911, end: 20070913
  5. VANCOMYCIN [Concomitant]
  6. FIRSTCIN (CEFOZOPRAN HYDROCHLORIDE) [Concomitant]
  7. SULPERAZON (CEFOPERAZONE SODIUM) [Concomitant]
  8. CYTARABINE [Concomitant]
  9. IDAMYCIN (IDARUBICIN HYDROCHLROIDE) [Concomitant]

REACTIONS (2)
  - DRUG INEFFECTIVE FOR UNAPPROVED INDICATION [None]
  - HYPOKALAEMIA [None]
